FAERS Safety Report 7182938-8 (Version None)
Quarter: 2010Q4

REPORT INFORMATION
  Report Type: 
  Country: None (occurrence: None)
  Receive Date: 20101222
  Receipt Date: 20101215
  Transmission Date: 20110411
  Serious: Yes (Other)
  Sender: FDA-Public Use
  Company Number: US-SOLVAY-00210007473

PATIENT
  Age: 67 Year
  Sex: Male
  Weight: 100 kg

DRUGS (5)
  1. NEURONTIN [Concomitant]
     Indication: PRODUCT USED FOR UNKNOWN INDICATION
     Dosage: DAILY DOSE:  UNKNOWN
     Route: 065
  2. ASPIRIN [Concomitant]
     Indication: PRODUCT USED FOR UNKNOWN INDICATION
     Dosage: DAILY DOSE:  UNKNOWN
     Route: 065
  3. ZOCOR [Concomitant]
     Indication: PRODUCT USED FOR UNKNOWN INDICATION
     Dosage: DAILY DOSE:  UNKNOWN
     Route: 065
  4. LOTENSIN [Concomitant]
     Indication: PRODUCT USED FOR UNKNOWN INDICATION
     Dosage: DAILY DOSE:  UNKNOWN
     Route: 065
  5. ANDROGEL [Suspect]
     Indication: BLOOD TESTOSTERONE DECREASED
     Dosage: DAILY DOSE:  UNKNOWN, AS USED: 2 GRAM
     Route: 062

REACTIONS (3)
  - BLOOD TESTOSTERONE DECREASED [None]
  - CHEST PAIN [None]
  - CORONARY ARTERY OCCLUSION [None]
